FAERS Safety Report 7676840-2 (Version None)
Quarter: 2011Q3

REPORT INFORMATION
  Report Type: 
  Country: None (occurrence: None)
  Receive Date: 20110810
  Receipt Date: 20110810
  Transmission Date: 20111222
  Serious: Yes (Hospitalization)
  Sender: FDA-Public Use
  Company Number: None

PATIENT
  Age: 60 Year
  Sex: Male
  Weight: 73 kg

DRUGS (3)
  1. MELOXICAM [Suspect]
     Indication: OSTEOARTHRITIS
     Dosage: 15MG EVERY DAY PO
     Route: 048
     Dates: start: 20110105
  2. LISINOPRIL [Suspect]
     Indication: HYPERTENSION
     Dosage: 2.5 MG EVERY DAY PO
     Route: 048
     Dates: start: 20101001, end: 20110512
  3. LISINOPRIL [Suspect]
     Indication: DIABETES MELLITUS
     Dosage: 2.5 MG EVERY DAY PO
     Route: 048
     Dates: start: 20101001, end: 20110512

REACTIONS (1)
  - ANGIOEDEMA [None]
